FAERS Safety Report 19889478 (Version 2)
Quarter: 2021Q4

REPORT INFORMATION
  Report Type: Spontaneous
  Country: US (occurrence: US)
  Receive Date: 20210928
  Receipt Date: 20211004
  Transmission Date: 20220304
  Serious: No
  Sender: FDA-Public Use
  Company Number: US-AIMMUNE THERAPEUTICS, INC.-2021AIMT00566

PATIENT

DRUGS (2)
  1. PALFORZIA [Suspect]
     Active Substance: PEANUT
     Indication: Food allergy
     Dosage: 1 MG, ONCE, IDE, LAST DOSE PRIOR EVENT ONSET
     Route: 048
     Dates: start: 20210812, end: 20210812
  2. PALFORZIA [Suspect]
     Active Substance: PEANUT
     Dosage: IDE
     Route: 048
     Dates: start: 20210812

REACTIONS (1)
  - Abdominal pain upper [Recovered/Resolved]

NARRATIVE: CASE EVENT DATE: 20210812
